FAERS Safety Report 19992215 (Version 2)
Quarter: 2022Q1

REPORT INFORMATION
  Report Type: Spontaneous
  Country: US (occurrence: US)
  Receive Date: 20211025
  Receipt Date: 20220224
  Transmission Date: 20220423
  Serious: Yes (Other)
  Sender: FDA-Public Use
  Company Number: US-BRISTOL-MYERS SQUIBB COMPANY-BMS-2021-107740

PATIENT
  Sex: Female

DRUGS (3)
  1. SPRYCEL [Interacting]
     Active Substance: DASATINIB
     Indication: Myeloid leukaemia
     Dosage: UNK
     Route: 065
  2. SPRYCEL [Interacting]
     Active Substance: DASATINIB
     Dosage: 80 MILLIGRAM, QD
     Route: 048
     Dates: start: 202002
  3. OMEPRAZOLE [Interacting]
     Active Substance: OMEPRAZOLE
     Indication: Product used for unknown indication
     Route: 065

REACTIONS (6)
  - Cardiovascular disorder [Unknown]
  - Arthralgia [Unknown]
  - Joint swelling [Unknown]
  - Labelled drug-drug interaction medication error [Unknown]
  - Oedema peripheral [Recovering/Resolving]
  - Pain [Recovering/Resolving]
